FAERS Safety Report 8031587-8 (Version None)
Quarter: 2012Q1

REPORT INFORMATION
  Report Type: 
  Country: None (occurrence: None)
  Receive Date: 20120109
  Receipt Date: 20111230
  Transmission Date: 20120608
  Serious: Yes (Hospitalization)
  Sender: FDA-Public Use
  Company Number: IE-MEDIMMUNE-MEDI-0014367

PATIENT
  Sex: Female
  Weight: 8.9 kg

DRUGS (4)
  1. SYNAGIS [Suspect]
     Route: 030
     Dates: start: 20111202, end: 20111202
  2. OMEPRAZOLE SODIUM [Concomitant]
  3. LACTULOSE [Concomitant]
  4. VALPROATE SODIUM [Concomitant]

REACTIONS (3)
  - DIARRHOEA [None]
  - VOMITING [None]
  - RESPIRATORY TRACT INFECTION VIRAL [None]
